FAERS Safety Report 6032926-X (Version None)
Quarter: 2009Q1

REPORT INFORMATION
  Report Type: 
  Country: None (occurrence: None)
  Receive Date: 20090109
  Receipt Date: 20090102
  Transmission Date: 20090719
  Serious: Yes (Other)
  Sender: FDA-Public Use
  Company Number: JP-ASTRAZENECA-2009SE00243

PATIENT
  Sex: Female

DRUGS (1)
  1. AMIAS [Suspect]
     Route: 065

REACTIONS (6)
  - APHONIA [None]
  - COUGH [None]
  - DRY THROAT [None]
  - LIP SWELLING [None]
  - SWELLING FACE [None]
  - SWOLLEN TONGUE [None]
